FAERS Safety Report 9061206 (Version 1)
Quarter: 2013Q1

REPORT INFORMATION
  Report Type: Report from Study
  Country: PH (occurrence: PH)
  Receive Date: 20130204
  Receipt Date: 20130204
  Transmission Date: 20140127
  Serious: Yes (Hospitalization, Disabling)
  Sender: FDA-Public Use
  Company Number: PHHO2010PH15348

PATIENT
  Age: 65 None
  Sex: Male
  Weight: 56 kg

DRUGS (10)
  1. BLINDED ENALAPRIL [Suspect]
     Indication: CARDIAC FAILURE CHRONIC
     Dosage: CODE NOT BROKEN
     Route: 048
     Dates: start: 20110420
  2. BLINDED LCZ696 [Suspect]
     Indication: CARDIAC FAILURE CHRONIC
     Dosage: CODE NOT BROKEN
     Route: 048
     Dates: start: 20110420
  3. BLINDED NO TREATMENT RECEIVED [Suspect]
     Indication: CARDIAC FAILURE CHRONIC
     Dosage: CODE NOT BROKEN
     Route: 048
     Dates: start: 20110420
  4. ISOMON [Concomitant]
     Indication: CARDIAC FAILURE CONGESTIVE
     Dosage: 60 MG/ 1 TABLET, QD
     Dates: start: 20090731
  5. GLICLAZIDE(DIAMICRON) [Concomitant]
     Indication: TYPE 2 DIABETES MELLITUS
     Dosage: 80 MG/ TABLET, QD
     Dates: start: 200608
  6. SIMVASTATIN [Concomitant]
     Indication: HYPERLIPIDAEMIA
     Dosage: 40 MG/ TABLET, QD
     Dates: start: 20091111
  7. FUROSEMIDE (DIAMIDE-Z) [Concomitant]
     Indication: CARDIAC FAILURE CONGESTIVE
     Dosage: 40 MG/ 1 TABLET, QD
     Dates: start: 200910
  8. AMIODARONE [Concomitant]
     Dosage: UNK
  9. SPIRONOLACTONE [Concomitant]
     Dosage: UNK
  10. CLOPIDOGREL [Concomitant]
     Indication: CARDIAC FAILURE CONGESTIVE
     Dosage: 75 MG/ TABLET, QD
     Dates: start: 200807

REACTIONS (14)
  - Cardiac failure congestive [Recovered/Resolved]
  - Pulmonary oedema [Recovering/Resolving]
  - Dyspnoea [Recovered/Resolved]
  - Orthopnoea [Recovered/Resolved]
  - Dyspnoea paroxysmal nocturnal [Recovered/Resolved]
  - Cardiomegaly [Unknown]
  - Defect conduction intraventricular [Unknown]
  - Left atrial dilatation [Unknown]
  - Left ventricular hypertrophy [Unknown]
  - Atelectasis [Unknown]
  - Fibrosis [Unknown]
  - Fluid overload [Unknown]
  - Chronic obstructive pulmonary disease [Recovering/Resolving]
  - Concomitant disease progression [Recovering/Resolving]
